FAERS Safety Report 8884270 (Version 2)
Quarter: 2012Q4

REPORT INFORMATION
  Report Type: 
  Country: JP (occurrence: JP)
  Receive Date: 20121102
  Receipt Date: 20121114
  Transmission Date: 20130627
  Serious: Yes (Other)
  Sender: FDA-Public Use
  Company Number: JP-PFIZER INC-2012269802

PATIENT
  Sex: Female

DRUGS (1)
  1. PREMARIN [Suspect]
     Dosage: 0.625 mg, day
     Route: 048

REACTIONS (2)
  - Heart rate increased [Recovered/Resolved]
  - Blood pressure increased [Recovered/Resolved]
